FAERS Safety Report 20014318 (Version 2)
Quarter: 2022Q1

REPORT INFORMATION
  Report Type: Spontaneous
  Country: CA (occurrence: CA)
  Receive Date: 20211029
  Receipt Date: 20220225
  Transmission Date: 20220423
  Serious: Yes (Death, Hospitalization)
  Sender: FDA-Public Use
  Company Number: CA-TEVA-2021-CA-1969681

PATIENT
  Age: 57 Year
  Sex: Female
  Weight: 78 kg

DRUGS (13)
  1. CARBOPLATIN [Suspect]
     Active Substance: CARBOPLATIN
     Indication: Lung neoplasm malignant
     Route: 065
  2. ETOPOSIDE [Suspect]
     Active Substance: ETOPOSIDE
     Indication: Lung neoplasm malignant
     Route: 065
  3. SCOPOLAMINE [Concomitant]
     Active Substance: SCOPOLAMINE
  4. BISACODYL [Concomitant]
     Active Substance: BISACODYL
  5. FENTANYL [Concomitant]
     Active Substance: FENTANYL
  6. GLYCERIN [Concomitant]
     Active Substance: GLYCERIN
  7. GLYCOPYRROLATE [Concomitant]
     Active Substance: GLYCOPYRROLATE
  8. HALOPERIDOL [Concomitant]
     Active Substance: HALOPERIDOL
  9. LORAZEPAM [Concomitant]
     Active Substance: LORAZEPAM
  10. LEVOMEPROMAZINE [Concomitant]
     Active Substance: LEVOMEPROMAZINE
  11. MIDAZOLAM [Concomitant]
     Active Substance: MIDAZOLAM
     Route: 065
  12. ONDANSETRON [Concomitant]
     Active Substance: ONDANSETRON
  13. GLYCOPYRROLATE [Concomitant]
     Active Substance: GLYCOPYRROLATE

REACTIONS (3)
  - Acute kidney injury [Fatal]
  - Respiratory failure [Fatal]
  - Febrile neutropenia [Fatal]
